FAERS Safety Report 12267516 (Version 3)
Quarter: 2016Q3

REPORT INFORMATION
  Report Type: Spontaneous
  Country: NL (occurrence: NL)
  Receive Date: 20160414
  Receipt Date: 20160812
  Transmission Date: 20161109
  Serious: Yes (Hospitalization, Other)
  Sender: FDA-Public Use
  Company Number: NL-ASTELLAS-2016US013544

PATIENT
  Age: 76 Year
  Sex: Male

DRUGS (1)
  1. ADVAGRAF [Suspect]
     Active Substance: TACROLIMUS
     Indication: IMMUNOSUPPRESSION
     Route: 048
     Dates: start: 20150421

REACTIONS (2)
  - Urinary tract infection [Unknown]
  - Biopsy kidney [Recovered/Resolved]

NARRATIVE: CASE EVENT DATE: 20160229
